FAERS Safety Report 5911360-4 (Version None)
Quarter: 2008Q4

REPORT INFORMATION
  Report Type: 
  Country: None (occurrence: None)
  Receive Date: 20081007
  Receipt Date: 20080925
  Transmission Date: 20090506
  Serious: Yes (Other)
  Sender: FDA-Public Use
  Company Number: US-PFIZER INC-2008058811

PATIENT
  Sex: Female
  Weight: 73 kg

DRUGS (7)
  1. CHANTIX [Suspect]
     Indication: SMOKING CESSATION THERAPY
     Dates: start: 20080101
  2. CYMBALTA [Concomitant]
     Indication: DEPRESSION
     Route: 048
  3. TEGRETOL [Concomitant]
     Route: 048
  4. ABILIFY [Concomitant]
     Route: 048
  5. FOSAMAX [Concomitant]
     Route: 048
  6. ETHINYL ESTRADIOL W/NORGESTREL [Concomitant]
     Route: 048
  7. ANTIHYPERTENSIVES [Concomitant]

REACTIONS (2)
  - CONFUSIONAL STATE [None]
  - DEPRESSION [None]
